FAERS Safety Report 9503406 (Version 2)
Quarter: 2013Q4

REPORT INFORMATION
  Report Type: Spontaneous
  Country: NL (occurrence: NL)
  Receive Date: 20130906
  Receipt Date: 20131008
  Transmission Date: 20140711
  Serious: No
  Sender: FDA-Public Use
  Company Number: NL-ASTELLAS-2013US009443

PATIENT
  Sex: Female

DRUGS (1)
  1. AMBISOME [Suspect]
     Indication: PRODUCT USED FOR UNKNOWN INDICATION
     Dosage: 6.5 ML, UNKNOWN/D
     Route: 055

REACTIONS (8)
  - Pulmonary function test decreased [Unknown]
  - Feeling cold [Unknown]
  - Abdominal pain lower [Recovered/Resolved]
  - Headache [Unknown]
  - Dyspnoea [Unknown]
  - Chest discomfort [Unknown]
  - Heart rate increased [Unknown]
  - Chills [Unknown]
